FAERS Safety Report 21808339 (Version 1)
Quarter: 2023Q1

REPORT INFORMATION
  Report Type: Other
  Country: US (occurrence: None)
  Receive Date: 20230103
  Receipt Date: 20230103
  Transmission Date: 20230418
  Serious: Yes (Other)
  Sender: FDA-Public Use
  Company Number: US-ROCHE-3255094

PATIENT
  Age: 61 Year
  Sex: Male
  Weight: 84.898 kg

DRUGS (1)
  1. OCREVUS [Suspect]
     Active Substance: OCRELIZUMAB
     Indication: Primary progressive multiple sclerosis
     Dosage: 300 MG ON DAY 1 AND DAY 15
     Route: 042
     Dates: start: 2021

REACTIONS (5)
  - COVID-19 [Recovered/Resolved]
  - Seizure [Recovered/Resolved]
  - Gait disturbance [Unknown]
  - Multiple sclerosis [Unknown]
  - Nasopharyngitis [Recovered/Resolved]

NARRATIVE: CASE EVENT DATE: 20220801
